FAERS Safety Report 9366633 (Version 1)
Quarter: 2013Q2

REPORT INFORMATION
  Report Type: Spontaneous
  Country: US (occurrence: US)
  Receive Date: 20130625
  Receipt Date: 20130625
  Transmission Date: 20140414
  Serious: No
  Sender: FDA-Public Use
  Company Number: US-BAYER-2013-076708

PATIENT
  Sex: Female

DRUGS (3)
  1. BETASERON [Suspect]
     Indication: SECONDARY PROGRESSIVE MULTIPLE SCLEROSIS
     Dosage: UNK
     Dates: start: 2003, end: 2003
  2. BACLOFEN [Concomitant]
  3. PROZAC [Concomitant]

REACTIONS (1)
  - Gait disturbance [None]
